FAERS Safety Report 4886033-X (Version None)
Quarter: 2006Q1

REPORT INFORMATION
  Report Type: 
  Country: None (occurrence: None)
  Receive Date: 20060117
  Receipt Date: 20060104
  Transmission Date: 20060701
  Serious: Yes (Death, Other)
  Sender: FDA-Public Use
  Company Number: A-CH2005-11207

PATIENT
  Age: 55 Year
  Sex: Female

DRUGS (14)
  1. TRACLEER [Suspect]
     Indication: PULMONARY HYPERTENSION
     Dosage: SEE IMAGE
     Route: 048
     Dates: start: 20050115, end: 20050101
  2. TRACLEER [Suspect]
     Indication: PULMONARY HYPERTENSION
     Dosage: SEE IMAGE
     Route: 048
     Dates: start: 20050101, end: 20050701
  3. TRACLEER [Suspect]
     Indication: PULMONARY HYPERTENSION
     Dosage: SEE IMAGE
     Route: 048
     Dates: start: 20050826, end: 20050830
  4. TRACLEER [Suspect]
     Indication: PULMONARY HYPERTENSION
     Dosage: SEE IMAGE
     Route: 048
     Dates: start: 20050831, end: 20051002
  5. CARVEDILOL [Concomitant]
  6. SIMVASTATIN [Concomitant]
  7. MONOKET [Concomitant]
  8. RAMIPRIL [Concomitant]
  9. DAONIL (GLIBENCLAMIDE) [Concomitant]
  10. METFORMIN HCL [Concomitant]
  11. BEHEPAN (CYANOCOBALAMIN) [Concomitant]
  12. FUROSEMIDE [Concomitant]
  13. WARAN [Concomitant]
  14. INSULATARD NPH HUMAN [Concomitant]

REACTIONS (14)
  - ACCIDENTAL OVERDOSE [None]
  - ALANINE AMINOTRANSFERASE INCREASED [None]
  - ASPARTATE AMINOTRANSFERASE INCREASED [None]
  - BLOOD CREATININE DECREASED [None]
  - CIRCULATORY COLLAPSE [None]
  - CORONARY ARTERY STENOSIS [None]
  - DILATATION ATRIAL [None]
  - GAMMA-GLUTAMYLTRANSFERASE INCREASED [None]
  - LUNG INFILTRATION [None]
  - MITRAL VALVE SCLEROSIS [None]
  - MYOCARDIAL FIBROSIS [None]
  - MYOCARDIAL INFARCTION [None]
  - PNEUMONIA [None]
  - SEPTIC SHOCK [None]
